FAERS Safety Report 8058839-X (Version None)
Quarter: 2012Q1

REPORT INFORMATION
  Report Type: 
  Country: None (occurrence: None)
  Receive Date: 20120119
  Receipt Date: 20120119
  Transmission Date: 20120608
  Serious: Yes (Hospitalization)
  Sender: FDA-Public Use
  Company Number: None

PATIENT
  Age: 90 Year
  Sex: Female
  Weight: 70 kg

DRUGS (10)
  1. ASPIRIN [Suspect]
     Indication: CORONARY ARTERY DISEASE
     Dosage: 81 MG DAILY PO CHRONIC
     Route: 048
  2. NITROGLYCERIN [Concomitant]
  3. PLAVIX [Suspect]
     Indication: CORONARY ARTERY DISEASE
     Dosage: 75 MG QHS PO CHRONIC
     Route: 048
  4. TOPROL-XL [Concomitant]
  5. HYDRODIURIL [Concomitant]
  6. NORVASC [Concomitant]
  7. CALCIUM CERLO / VIT D [Concomitant]
  8. ZOCOR [Concomitant]
  9. ZESTRIL [Concomitant]
  10. MULTI-VITAMINS [Concomitant]

REACTIONS (3)
  - HAEMATOMA [None]
  - URINARY TRACT INFECTION [None]
  - FALL [None]
